FAERS Safety Report 21347519 (Version 1)
Quarter: 2022Q3

REPORT INFORMATION
  Report Type: Spontaneous
  Country: US (occurrence: US)
  Receive Date: 20220919
  Receipt Date: 20220919
  Transmission Date: 20221027
  Serious: Yes (Other)
  Sender: FDA-Public Use
  Company Number: US-NOVOPROD-957803

PATIENT
  Sex: Male

DRUGS (1)
  1. NOVOLOG MIX 70/30 [Suspect]
     Active Substance: INSULIN ASPART
     Indication: Type 1 diabetes mellitus
     Dosage: 25 IU
     Route: 058

REACTIONS (6)
  - Accident at work [Unknown]
  - Spinal deformity [Unknown]
  - Chondropathy [Unknown]
  - Sleep apnoea syndrome [Unknown]
  - Somniphobia [Unknown]
  - Overweight [Unknown]
